FAERS Safety Report 20112151 (Version 2)
Quarter: 2021Q4

REPORT INFORMATION
  Report Type: Other
  Country: US (occurrence: None)
  Receive Date: 20211125
  Receipt Date: 20211207
  Transmission Date: 20220304
  Serious: Yes (Death)
  Sender: FDA-Public Use
  Company Number: US-ROCHE-2959717

PATIENT
  Sex: Female

DRUGS (4)
  1. OCREVUS [Suspect]
     Active Substance: OCRELIZUMAB
     Indication: Multiple sclerosis
     Dosage: LAST DOSE DATE: 16/AUG/2021. NEXT SCHEDULED DOSE: 16/FEB/2022.
     Route: 042
     Dates: start: 20201209
  2. OCREVUS [Suspect]
     Active Substance: OCRELIZUMAB
     Route: 042
     Dates: start: 20210801
  3. ALBUTEROL [Concomitant]
     Active Substance: ALBUTEROL
  4. COVID-19 VACCINE MRNA [Concomitant]

REACTIONS (1)
  - COVID-19 pneumonia [Fatal]
